FAERS Safety Report 23733668 (Version 5)
Quarter: 2024Q4

REPORT INFORMATION
  Report Type: Spontaneous
  Country: DE (occurrence: DE)
  Receive Date: 20240411
  Receipt Date: 20241111
  Transmission Date: 20250115
  Serious: Yes (Death, Hospitalization)
  Sender: SANDOZ
  Company Number: DE-KRKA-DE2023K17892STU

PATIENT
  Age: 72 Year
  Sex: Female
  Weight: 59 kg

DRUGS (31)
  1. BORTEZOMIB [Suspect]
     Active Substance: BORTEZOMIB
     Indication: Plasma cell myeloma
     Dosage: 1.3 DOSAGE FORM, QD (1.3 MG/M2 PER BODY SURFACE ON THE CYCLE DAYS 1, 4, 8, 11)
     Route: 065
     Dates: start: 20230904
  2. BORTEZOMIB [Suspect]
     Active Substance: BORTEZOMIB
     Dosage: 1.3 DOSAGE FORM, QD (1.3 MG/M^2 PER BODY SURFACE, PER DAY)
     Route: 065
     Dates: start: 20230904
  3. BORTEZOMIB [Suspect]
     Active Substance: BORTEZOMIB
     Dosage: 2.2 MG, QD (2.2 MG (1.3 MG/M2 BODY SURFACE) ON CYCLE DAYS 1, 4, 8, 11 OF A 28 DAY CYCLE)
     Route: 065
     Dates: start: 20230904
  4. DECADRON (DEXAMETHASONE SODIUM PHOSPHATE) [Suspect]
     Active Substance: DEXAMETHASONE SODIUM PHOSPHATE
     Indication: Plasma cell myeloma
     Dosage: 20 MG, QD (ON CYCLE DAYS 1,2,4,5,8,9,11,12)
     Route: 048
     Dates: start: 20230904
  5. DECADRON (DEXAMETHASONE SODIUM PHOSPHATE) [Suspect]
     Active Substance: DEXAMETHASONE SODIUM PHOSPHATE
     Dosage: 20 MG, QD (20 MG PER DAY ON CYCLE DAYS 1,2,4,5,8,9,11,12 OF A 28 DAY CYCLE)
     Route: 065
     Dates: start: 20230904
  6. LENALIDOMIDE [Suspect]
     Active Substance: LENALIDOMIDE
     Indication: Plasma cell myeloma
     Dosage: 25 MG, QD (1X PER DAY ON CYCLE)
     Route: 048
     Dates: start: 20230904
  7. LENALIDOMIDE [Suspect]
     Active Substance: LENALIDOMIDE
     Dosage: 25 MG, QD (25 MG, 1X PER DAY ON CYCLE DAYS 1-14 OF A 28 DAY CYCLE)
     Route: 048
     Dates: start: 20230904
  8. ELIQUIS [Concomitant]
     Active Substance: APIXABAN
     Indication: Product used for unknown indication
     Dosage: 5 MG, BID
     Route: 065
  9. ELIQUIS [Concomitant]
     Active Substance: APIXABAN
     Dosage: 5 MG, 2X PER DAY
     Route: 065
  10. ELIQUIS [Concomitant]
     Active Substance: APIXABAN
     Dosage: 5 MG, 2X PER DAY
     Route: 065
  11. FOLIC ACID [Concomitant]
     Active Substance: FOLIC ACID
     Dosage: 5 MG, 1X PER DAY IN THE MORNING
     Route: 065
  12. FOLIC ACID [Concomitant]
     Active Substance: FOLIC ACID
     Dosage: 5 MG, 1X PER DAY IN THE MORNING
     Route: 065
  13. FOLIC ACID [Concomitant]
     Active Substance: FOLIC ACID
     Indication: Product used for unknown indication
     Dosage: 5 MG, QD (IN THE MORNING)
     Route: 065
  14. Kalinor [Concomitant]
     Indication: Product used for unknown indication
     Dosage: UNK UNK, BID
     Route: 065
  15. METOPROLOL [Concomitant]
     Active Substance: METOPROLOL
     Dosage: 100 MG, 1X PER DAY IN THE MORNING
     Route: 065
  16. METOPROLOL [Concomitant]
     Active Substance: METOPROLOL
     Dosage: 100 MG, 1X PER DAY IN THE MORNING
     Route: 065
  17. METOPROLOL [Concomitant]
     Active Substance: METOPROLOL
     Indication: Product used for unknown indication
     Dosage: 100 MG, QD (1X PER DAY UIN THE MORNING)
     Route: 065
  18. METAMIZOLE [Concomitant]
     Active Substance: METAMIZOLE
     Indication: Product used for unknown indication
     Dosage: 40 MG, QID
     Route: 065
  19. PALEXIA [Concomitant]
     Active Substance: TAPENTADOL HYDROCHLORIDE
     Dosage: 100 MG, 2X PER DAY
     Route: 065
  20. PALEXIA [Concomitant]
     Active Substance: TAPENTADOL HYDROCHLORIDE
     Dosage: 100 MG, 2X PER DAY
     Route: 065
  21. PALEXIA [Concomitant]
     Active Substance: TAPENTADOL HYDROCHLORIDE
     Indication: Product used for unknown indication
     Dosage: 100 MG, BID
     Route: 065
  22. PANTOPRAZOLE [Concomitant]
     Active Substance: PANTOPRAZOLE
     Dosage: 40 MG, 1X PER DAY IN THE MORNING
     Route: 065
  23. PANTOPRAZOLE [Concomitant]
     Active Substance: PANTOPRAZOLE
     Dosage: 40 MG, 1X PER DAY IN THE MORNING
     Route: 065
  24. PANTOPRAZOLE [Concomitant]
     Active Substance: PANTOPRAZOLE
     Indication: Product used for unknown indication
     Dosage: 40 MG, QD (IN THE MORNING)
     Route: 065
  25. RAMIPRIL [Concomitant]
     Active Substance: RAMIPRIL
     Indication: Product used for unknown indication
     Dosage: 5 MG, BID
     Route: 065
  26. RAMIPRIL [Concomitant]
     Active Substance: RAMIPRIL
     Dosage: 5 MG, 2X PER DAY
     Route: 065
  27. RAMIPRIL [Concomitant]
     Active Substance: RAMIPRIL
     Dosage: 5 MG, 2X PER DAY
     Route: 065
  28. SPIRONOLACTONE [Concomitant]
     Active Substance: SPIRONOLACTONE
     Dosage: 25 MG, 1X PER DAY IN THE MORNING
     Route: 065
  29. SPIRONOLACTONE [Concomitant]
     Active Substance: SPIRONOLACTONE
     Dosage: 25 MG, 1X PER DAY IN THE MORNING
     Route: 065
  30. SPIRONOLACTONE [Concomitant]
     Active Substance: SPIRONOLACTONE
     Indication: Product used for unknown indication
     Dosage: 25 MG, QD (IN THE MORNING)
     Route: 065
  31. VITAMIN D [Concomitant]
     Active Substance: VITAMIN D NOS
     Indication: Product used for unknown indication
     Dosage: 2000 IU, QD (IN THE MORNING)
     Route: 065

REACTIONS (4)
  - Sepsis [Fatal]
  - Cholecystitis [Recovered/Resolved]
  - Gastrointestinal infection [Recovered/Resolved]
  - Nausea [Recovered/Resolved]

NARRATIVE: CASE EVENT DATE: 20230925
